FAERS Safety Report 4661230-7 (Version None)
Quarter: 2005Q2

REPORT INFORMATION
  Report Type: 
  Country: None (occurrence: None)
  Receive Date: 20050511
  Receipt Date: 20050426
  Transmission Date: 20051028
  Serious: Yes (Hospitalization)
  Sender: FDA-Public Use
  Company Number: 214055

PATIENT
  Age: 71 Year
  Sex: Female

DRUGS (5)
  1. RITUXAN (RITUXIMAB) CONC FOR SOLUTION FOR INFUSION [Suspect]
     Dosage: 450 MG, INTRAVENOUS
     Route: 042
     Dates: start: 20041006, end: 20041201
  2. CYCLOPHOSPHAMIDE [Concomitant]
  3. DOXORUBICIN HCL [Concomitant]
  4. VINCRISTINE [Concomitant]
  5. PREDNISONE [Concomitant]

REACTIONS (1)
  - TUBERCULOSIS [None]
